FAERS Safety Report 14425703 (Version 1)
Quarter: 2018Q1

REPORT INFORMATION
  Report Type: Spontaneous
  Country: US (occurrence: US)
  Receive Date: 20180122
  Receipt Date: 20180122
  Transmission Date: 20180509
  Serious: Yes (Life-Threatening)
  Sender: FDA-Public Use
  Company Number: None

PATIENT
  Age: 61 Year
  Sex: Male
  Weight: 70.65 kg

DRUGS (5)
  1. OMEPRAZOLE. [Concomitant]
     Active Substance: OMEPRAZOLE
  2. MONTELUKAST SOD [Concomitant]
     Active Substance: MONTELUKAST SODIUM
  3. VITAMIN E [Concomitant]
     Active Substance: .ALPHA.-TOCOPHEROL
  4. (CLARISPARY) FLUTICASONE PROPIONATE [Concomitant]
  5. MIDAZOLAM [Suspect]
     Active Substance: MIDAZOLAM HYDROCHLORIDE

REACTIONS (5)
  - Agitation [None]
  - Unresponsive to stimuli [None]
  - Respiratory arrest [None]
  - Stridor [None]
  - Dyspnoea [None]

NARRATIVE: CASE EVENT DATE: 20171205
